FAERS Safety Report 8606832-8 (Version None)
Quarter: 2012Q3

REPORT INFORMATION
  Report Type: 
  Country: None (occurrence: None)
  Receive Date: 20120820
  Receipt Date: 20120815
  Transmission Date: 20120928
  Serious: Yes (Other)
  Sender: FDA-Public Use
  Company Number: AU-ROCHE-1102875

PATIENT
  Sex: Female

DRUGS (1)
  1. ROACTEMRA [Suspect]
     Indication: RHEUMATOID ARTHRITIS
     Dosage: LAST INFUSION- 09/AUG/2012
     Route: 042
     Dates: start: 20111027, end: 20120815

REACTIONS (1)
  - BILE DUCT STONE [None]
